FAERS Safety Report 22111004 (Version 4)
Quarter: 2023Q2

REPORT INFORMATION
  Report Type: Report from Study
  Country: SE (occurrence: SE)
  Receive Date: 20230317
  Receipt Date: 20230407
  Transmission Date: 20230722
  Serious: Yes (Life-Threatening, Hospitalization, Other)
  Sender: FDA-Public Use
  Company Number: SE-ABBVIE-4340456

PATIENT
  Age: 35 Year
  Sex: Male

DRUGS (23)
  1. PLACEBO [Suspect]
     Active Substance: UNSPECIFIED INGREDIENT
     Indication: Dermatitis atopic
     Route: 048
     Dates: start: 20191107, end: 20200303
  2. UPADACITINIB [Suspect]
     Active Substance: UPADACITINIB
     Indication: Dermatitis atopic
     Route: 048
     Dates: start: 20200304, end: 20230221
  3. UPADACITINIB [Suspect]
     Active Substance: UPADACITINIB
     Indication: Dermatitis atopic
     Route: 048
     Dates: start: 20230305
  4. EBASTINE [Concomitant]
     Active Substance: EBASTINE
     Indication: Hypersensitivity
     Dosage: TIME INTERVAL: AS NECESSARY
     Route: 048
     Dates: start: 20170327
  5. HYDROCORTISONE [Concomitant]
     Active Substance: HYDROCORTISONE
     Indication: Dermatitis atopic
     Dosage: TIME INTERVAL: AS NECESSARY: DOSAGE: 10 MG/G
     Route: 061
     Dates: start: 20211007
  6. HYDROCORTISONE [Concomitant]
     Active Substance: HYDROCORTISONE
     Indication: Dermatitis atopic
     Dosage: DOSAGE: 10 MG/G
     Route: 061
     Dates: start: 20200108, end: 20200114
  7. HYDROCORTISONE [Concomitant]
     Active Substance: HYDROCORTISONE
     Indication: Dermatitis atopic
     Dosage: DOSAGE: 10 MG/G
     Route: 061
     Dates: start: 20200423, end: 20200425
  8. HYDROCORTISONE [Concomitant]
     Active Substance: HYDROCORTISONE
     Indication: Dermatitis atopic
     Dosage: DOSAGE: 10 MG/G
     Route: 061
     Dates: start: 20200808, end: 20200815
  9. HYDROCORTISONE [Concomitant]
     Active Substance: HYDROCORTISONE
     Indication: Dermatitis atopic
     Dosage: DOSAGE: 10 MG/G
     Route: 061
     Dates: start: 20201019, end: 20201102
  10. HYDROCORTISONE [Concomitant]
     Active Substance: HYDROCORTISONE
     Indication: Dermatitis atopic
     Dosage: DOSAGE: 10 MG/G
     Route: 061
     Dates: start: 20201124, end: 20201201
  11. HYDROCORTISONE [Concomitant]
     Active Substance: HYDROCORTISONE
     Indication: Dermatitis atopic
     Dosage: DOSAGE: 10 MG/G 1 %
     Route: 061
     Dates: start: 20200323, end: 20200324
  12. HYDROCORTISONE [Concomitant]
     Active Substance: HYDROCORTISONE
     Indication: Dermatitis atopic
     Dosage: DOSAGE: 10 MG/G
     Route: 061
     Dates: start: 20210126, end: 20210202
  13. HYDROCORTISONE [Concomitant]
     Active Substance: HYDROCORTISONE
     Indication: Dermatitis atopic
     Dosage: DOSAGE: 10 MG/G
     Route: 061
     Dates: start: 20191129, end: 20191205
  14. MOMETASONE FUROATE [Concomitant]
     Active Substance: MOMETASONE FUROATE
     Indication: Dermatitis atopic
     Dosage: TIME INTERVAL: AS NECESSARY: DOSAGE: 1 MG/G
     Route: 061
     Dates: start: 20211007
  15. MOMETASONE FUROATE [Concomitant]
     Active Substance: MOMETASONE FUROATE
     Indication: Dermatitis atopic
     Dosage: DOSAGE: 1 MG/G
     Route: 061
     Dates: start: 20201102, end: 20201123
  16. MOMETASONE FUROATE [Concomitant]
     Active Substance: MOMETASONE FUROATE
     Indication: Dermatitis atopic
     Dosage: DOSAGE: 1 MG/G
     Route: 061
     Dates: start: 20210426, end: 20210510
  17. MOMETASONE FUROATE [Concomitant]
     Active Substance: MOMETASONE FUROATE
     Indication: Dermatitis atopic
     Dosage: DOSAGE: 1 MG/G
     Route: 061
     Dates: start: 20220121, end: 20220127
  18. ELIDEL [Concomitant]
     Active Substance: PIMECROLIMUS
     Indication: Dermatitis atopic
     Dosage: TIME INTERVAL: AS NECESSARY: DOSAGE: 10 MG/G
     Route: 061
     Dates: start: 20210701
  19. ELIDEL [Concomitant]
     Active Substance: PIMECROLIMUS
     Indication: Dermatitis atopic
     Dosage: DOSAGE: 10 MG/G
     Route: 061
     Dates: start: 20210329, end: 20210421
  20. MINIDERM [Concomitant]
     Indication: Dry skin prophylaxis
     Route: 061
     Dates: start: 20220331
  21. INNOVAIR [Concomitant]
     Active Substance: BECLOMETHASONE DIPROPIONATE\FORMOTEROL
     Indication: Asthma
     Dosage: 100/6 UG
     Route: 055
     Dates: start: 20210604
  22. ALBUTEROL SULFATE [Concomitant]
     Active Substance: ALBUTEROL SULFATE
     Indication: Asthma
     Dosage: TIME INTERVAL: AS NECESSARY: AUTOHALER
     Route: 055
     Dates: start: 20210604
  23. DYMISTA [Concomitant]
     Active Substance: AZELASTINE HYDROCHLORIDE\FLUTICASONE PROPIONATE
     Indication: Hypersensitivity
     Dosage: 125+50 UG PER DOSE
     Route: 045
     Dates: start: 202003

REACTIONS (1)
  - Sepsis [Recovered/Resolved]

NARRATIVE: CASE EVENT DATE: 20230222
